FAERS Safety Report 4937304-X (Version None)
Quarter: 2006Q1

REPORT INFORMATION
  Report Type: 
  Country: None (occurrence: None)
  Receive Date: 20060309
  Receipt Date: 20060227
  Transmission Date: 20060701
  Serious: Yes (Hospitalization)
  Sender: FDA-Public Use
  Company Number: FR-JNJFOC-20060300001

PATIENT
  Age: 70 Year
  Sex: Male

DRUGS (7)
  1. HALDOL [Suspect]
     Indication: DRUG USE FOR UNKNOWN INDICATION
     Route: 048
  2. DIPIPERON [Suspect]
     Indication: DRUG USE FOR UNKNOWN INDICATION
     Route: 048
  3. LEPTICUR [Concomitant]
     Route: 065
  4. LOVENOX [Concomitant]
     Route: 065
  5. TERALITHE [Concomitant]
     Route: 065
  6. TERALITHE [Concomitant]
     Route: 065
  7. PRAZEPAM [Concomitant]
     Route: 065

REACTIONS (4)
  - AGGRESSION [None]
  - CONFUSIONAL STATE [None]
  - MUSCULAR WEAKNESS [None]
  - SOMNOLENCE [None]
